FAERS Safety Report 16947080 (Version 1)
Quarter: 2019Q4

REPORT INFORMATION
  Report Type: Spontaneous
  Country: US (occurrence: US)
  Receive Date: 20191022
  Receipt Date: 20191022
  Transmission Date: 20200122
  Serious: No
  Sender: FDA-Public Use
  Company Number: US-SOMERSET-2019-US-000035

PATIENT
  Age: 85 Year
  Sex: Male

DRUGS (1)
  1. BRIMONIDINE TARTRATE OPHTHALMIC SOLUTION, 0.2% [Suspect]
     Active Substance: BRIMONIDINE TARTRATE
     Indication: GLAUCOMA
     Dosage: 1 DROP IN EACH EYE 2X DAILY
     Dates: start: 20190628, end: 20190827

REACTIONS (2)
  - Eye burns [Recovered/Resolved]
  - Vision blurred [Recovered/Resolved]

NARRATIVE: CASE EVENT DATE: 20190628
